FAERS Safety Report 12272666 (Version 1)
Quarter: 2016Q2

REPORT INFORMATION
  Report Type: Report from Study
  Country: ES (occurrence: ES)
  Receive Date: 20160415
  Receipt Date: 20160415
  Transmission Date: 20160815
  Serious: Yes (Hospitalization)
  Sender: FDA-Public Use
  Company Number: ES-BAYER-2016-066200

PATIENT
  Age: 80 Year
  Sex: Female

DRUGS (1)
  1. ADIRO 100 MG GASTRO-RESISTANT TABLETS, 30 TABLETS [Suspect]
     Active Substance: ASPIRIN
     Indication: TRANSIENT ISCHAEMIC ATTACK
     Dosage: 100 MG, QD
     Route: 065
     Dates: start: 20121123, end: 20160118

REACTIONS (2)
  - Fall [None]
  - Subdural haematoma [Recovering/Resolving]

NARRATIVE: CASE EVENT DATE: 20160118
